FAERS Safety Report 22525303 (Version 1)
Quarter: 2023Q2

REPORT INFORMATION
  Report Type: Spontaneous
  Country: JP (occurrence: JP)
  Receive Date: 20230606
  Receipt Date: 20230606
  Transmission Date: 20230721
  Serious: Yes (Death, Hospitalization)
  Sender: FDA-Public Use
  Company Number: JP-MYLANLABS-2023M1057990

PATIENT
  Age: 69 Year
  Sex: Male

DRUGS (12)
  1. MYCOPHENOLATE MOFETIL [Suspect]
     Active Substance: MYCOPHENOLATE MOFETIL
     Indication: Prophylaxis against graft versus host disease
     Dosage: UNK
     Route: 065
  2. MYCOPHENOLATE MOFETIL [Suspect]
     Active Substance: MYCOPHENOLATE MOFETIL
     Indication: Idiopathic pneumonia syndrome
  3. TACROLIMUS [Suspect]
     Active Substance: TACROLIMUS
     Indication: Prophylaxis against graft versus host disease
     Dosage: UNK
     Route: 048
  4. TACROLIMUS [Suspect]
     Active Substance: TACROLIMUS
     Indication: Idiopathic pneumonia syndrome
  5. PREDNISOLONE [Suspect]
     Active Substance: PREDNISOLONE
     Indication: Idiopathic pneumonia syndrome
     Dosage: 30 MILLIGRAM, QD
     Route: 065
  6. PREDNISOLONE [Suspect]
     Active Substance: PREDNISOLONE
     Dosage: PULSE THERAPY
     Route: 065
  7. CYCLOPHOSPHAMIDE [Suspect]
     Active Substance: CYCLOPHOSPHAMIDE
     Indication: Prophylaxis against graft versus host disease
     Dosage: 50 MILLIGRAM/KILOGRAM, ON DAYS 3 AND 4
     Route: 065
  8. CYCLOPHOSPHAMIDE [Suspect]
     Active Substance: CYCLOPHOSPHAMIDE
     Indication: Idiopathic pneumonia syndrome
     Dosage: PULSE THERAPY
     Route: 065
  9. TACROLIMUS [Suspect]
     Active Substance: TACROLIMUS
     Indication: Prophylaxis against graft versus host disease
     Dosage: FROM DAY 5
     Route: 042
  10. TACROLIMUS [Suspect]
     Active Substance: TACROLIMUS
     Indication: Idiopathic pneumonia syndrome
  11. THYMOCYTE IMMUNE GLOBULIN NOS [Suspect]
     Active Substance: THYMOCYTE IMMUNE GLOBULIN NOS
     Indication: Idiopathic pneumonia syndrome
     Dosage: 1 MILLIGRAM/KILOGRAM
     Route: 065
  12. RUXOLITINIB [Suspect]
     Active Substance: RUXOLITINIB
     Indication: Idiopathic pneumonia syndrome
     Dosage: 20 MILLIGRAM, QD
     Route: 065

REACTIONS (1)
  - Drug ineffective [Fatal]
